FAERS Safety Report 7994851-4 (Version None)
Quarter: 2011Q4

REPORT INFORMATION
  Report Type: 
  Country: None (occurrence: None)
  Receive Date: 20111220
  Receipt Date: 20111213
  Transmission Date: 20120403
  Serious: Yes (Disabling)
  Sender: FDA-Public Use
  Company Number: GB-BAYER-2011-120374

PATIENT
  Age: 62 Year
  Sex: Male

DRUGS (14)
  1. ALLOPURINOL [Concomitant]
     Dosage: UNK
     Dates: start: 20111008, end: 20111105
  2. CINCHOCAINE [Concomitant]
     Dosage: UNK
     Dates: start: 20110826, end: 20111101
  3. ATORVASTATIN [Concomitant]
     Dosage: UNK
     Dates: start: 20110813, end: 20110910
  4. NAPROXEN SODIUM [Suspect]
     Indication: INTERMITTENT CLAUDICATION
  5. ALLOPURINOL [Concomitant]
     Dosage: UNK
     Dates: start: 20110813, end: 20110910
  6. ATORVASTATIN [Concomitant]
     Dosage: UNK
     Dates: start: 20111008, end: 20111105
  7. FUROSEMIDE [Concomitant]
     Dosage: UNK
     Dates: start: 20111008, end: 20111105
  8. ATENOLOL [Concomitant]
     Dosage: UNK
     Dates: start: 20111008, end: 20111105
  9. NICORANDIL [Concomitant]
     Dosage: UNK
     Dates: start: 20111008, end: 20111105
  10. ATENOLOL [Concomitant]
     Dosage: UNK
     Dates: start: 20110813, end: 20110910
  11. FUROSEMIDE [Concomitant]
     Dosage: UNK
     Dates: start: 20110813, end: 20110910
  12. CANDESARTAN CILEXETIL [Concomitant]
     Dosage: UNK
     Dates: start: 20111008, end: 20111105
  13. NICORANDIL [Concomitant]
     Dosage: UNK
     Dates: start: 20110813, end: 20110910
  14. CANDESARTAN CILEXETIL [Concomitant]
     Dosage: UNK
     Dates: start: 20110813, end: 20110910

REACTIONS (1)
  - MYALGIA [None]
